FAERS Safety Report 15017892 (Version 1)
Quarter: 2018Q2

REPORT INFORMATION
  Report Type: Spontaneous
  Country: US (occurrence: US)
  Receive Date: 20180615
  Receipt Date: 20180615
  Transmission Date: 20180711
  Serious: Yes (Disabling, Other)
  Sender: FDA-Public Use
  Company Number: US-JNJFOC-20180617649

PATIENT
  Age: 47 Year
  Sex: Female

DRUGS (1)
  1. INVOKANA [Suspect]
     Active Substance: CANAGLIFLOZIN
     Indication: TYPE 2 DIABETES MELLITUS
     Route: 048

REACTIONS (5)
  - Diabetic ketoacidosis [Unknown]
  - Osteomyelitis [Unknown]
  - Leg amputation [Unknown]
  - Diabetic foot infection [Unknown]
  - Diabetic gangrene [Unknown]

NARRATIVE: CASE EVENT DATE: 20150403
